FAERS Safety Report 11360116 (Version 1)
Quarter: 2015Q3

REPORT INFORMATION
  Report Type: Spontaneous
  Country: PT (occurrence: PT)
  Receive Date: 20150810
  Receipt Date: 20150810
  Transmission Date: 20151125
  Serious: Yes (Other)
  Sender: FDA-Public Use
  Company Number: PT-ROCHE-1618593

PATIENT
  Age: 51 Year
  Sex: Male
  Weight: 90 kg

DRUGS (5)
  1. SULFAMETHOXAZOLE/TRIMETHOPRIM [Concomitant]
     Active Substance: SULFAMETHOXAZOLE\TRIMETHOPRIM
     Route: 065
  2. CICLOFOSFAMIDA [Concomitant]
     Active Substance: CYCLOPHOSPHAMIDE
     Indication: LEUKAEMIA
     Route: 042
     Dates: start: 20150518
  3. MABTHERA [Suspect]
     Active Substance: RITUXIMAB
     Indication: LEUKAEMIA
     Route: 042
     Dates: start: 20150518
  4. FLUDARABINE [Concomitant]
     Active Substance: FLUDARABINE PHOSPHATE
     Indication: LEUKAEMIA
     Route: 042
     Dates: start: 20150518
  5. ALLOPURINOL. [Concomitant]
     Active Substance: ALLOPURINOL
     Route: 065

REACTIONS (2)
  - Loss of consciousness [Recovered/Resolved]
  - Pallor [Recovered/Resolved]

NARRATIVE: CASE EVENT DATE: 20150518
